FAERS Safety Report 6373042-7 (Version None)
Quarter: 2009Q3

REPORT INFORMATION
  Report Type: 
  Country: None (occurrence: None)
  Receive Date: 20090924
  Receipt Date: 20090722
  Transmission Date: 20100115
  Serious: No
  Sender: FDA-Public Use
  Company Number: US-ASTRAZENECA-2009SE05701

PATIENT
  Age: 95 Year
  Sex: Female
  Weight: 91.6 kg

DRUGS (1)
  1. SEROQUEL [Suspect]
     Indication: DEMENTIA
     Route: 048

REACTIONS (3)
  - HALLUCINATION [None]
  - NIGHTMARE [None]
  - SOMNAMBULISM [None]
